FAERS Safety Report 9904936 (Version 1)
Quarter: 2013Q2

REPORT INFORMATION
  Report Type: Spontaneous
  Country: US (occurrence: None)
  Receive Date: 20130305
  Receipt Date: 20130305
  Transmission Date: 20140414
  Serious: Yes (Other)
  Sender: FDA-Public Use
  Company Number: 1000040940

PATIENT
  Age: 70 Year
  Sex: Female

DRUGS (6)
  1. DALIRESP [Suspect]
     Indication: CHRONIC OBSTRUCTIVE PULMONARY DISEASE
     Dosage: 500 MCG (500 MCG, 1 IN 1 D), ORAL
     Route: 048
     Dates: start: 20121203
  2. METFORMIN (METFORMIN) (METFORMIN) [Concomitant]
  3. LISINOPRIL (LISINOPRIL) (LISINOPRIL) [Concomitant]
  4. ASPIRIN (ACETYLSALICYLIC ACID) (ACETYLSALICYLIC ACID)? [Concomitant]
  5. ISOSORBIDE (ISOSORBIDE) (ISOSORBIDE) [Concomitant]
  6. OXYGEN (OXYGEN) (OXYGEN) [Concomitant]

REACTIONS (3)
  - Insomnia [None]
  - Chest discomfort [None]
  - Heart rate increased [None]
